FAERS Safety Report 7051746-0 (Version None)
Quarter: 2010Q4

REPORT INFORMATION
  Report Type: 
  Country: None (occurrence: None)
  Receive Date: 20101019
  Receipt Date: 20101006
  Transmission Date: 20110411
  Serious: Yes (Hospitalization)
  Sender: FDA-Public Use
  Company Number: PHHY2010JP67056

PATIENT
  Age: 24 Year
  Sex: Female

DRUGS (1)
  1. TEGRETOL [Suspect]
     Indication: FRONTAL LOBE EPILEPSY
     Dosage: UNK

REACTIONS (2)
  - HYPERVENTILATION [None]
  - PSYCHOTIC DISORDER [None]
